FAERS Safety Report 9082019 (Version 1)
Quarter: 2013Q1

REPORT INFORMATION
  Report Type: Report from Study
  Country: US (occurrence: US)
  Receive Date: 20130130
  Receipt Date: 20130130
  Transmission Date: 20140127
  Serious: No
  Sender: FDA-Public Use
  Company Number: US-ABBOTT-12P-163-0957564-00

PATIENT
  Age: 73 Year
  Sex: Male

DRUGS (5)
  1. HUMIRA 40 MG/0.8 ML PEN [Suspect]
     Indication: PSORIASIS
     Route: 058
  2. METOPROLOL [Concomitant]
     Indication: CARDIAC DISORDER
     Dosage: 1 IN AM AND 1 IN PM
     Route: 048
  3. VYTORIN [Concomitant]
     Indication: CARDIAC DISORDER
     Dosage: 10/40MG 1 DAILY
  4. ASPIRIN [Concomitant]
     Indication: CARDIAC DISORDER
     Dosage: 0.5 TABLET DAILY
  5. DIFLORASONE DIACETATE [Concomitant]
     Indication: PSORIASIS
     Dosage: OINTMENT APPLIED TO AFFECTED AREAS TWICE DAILY
     Route: 061

REACTIONS (1)
  - Psoriasis [Not Recovered/Not Resolved]
